FAERS Safety Report 25261097 (Version 2)
Quarter: 2025Q2

REPORT INFORMATION
  Report Type: Spontaneous
  Country: BR (occurrence: BR)
  Receive Date: 20250501
  Receipt Date: 20250610
  Transmission Date: 20250716
  Serious: Yes (Other)
  Sender: GILEAD
  Company Number: BR-GILEAD-2025-0712030

PATIENT
  Age: 50 Year
  Sex: Female

DRUGS (9)
  1. VIREAD [Suspect]
     Active Substance: TENOFOVIR DISOPROXIL FUMARATE
     Indication: HIV infection
     Route: 065
     Dates: start: 201303
  2. VIREAD [Suspect]
     Active Substance: TENOFOVIR DISOPROXIL FUMARATE
     Route: 065
     Dates: start: 201710
  3. LAMIVUDINE [Concomitant]
     Active Substance: LAMIVUDINE
     Dates: start: 201303
  4. ATAZANAVIR\RITONAVIR [Concomitant]
     Active Substance: ATAZANAVIR\RITONAVIR
     Dates: start: 201303
  5. SULFAMETHOXAZOLE\TRIMETHOPRIM [Concomitant]
     Active Substance: SULFAMETHOXAZOLE\TRIMETHOPRIM
     Indication: Pneumocystis jirovecii pneumonia
  6. SULFAMETHOXAZOLE\TRIMETHOPRIM [Concomitant]
     Active Substance: SULFAMETHOXAZOLE\TRIMETHOPRIM
     Route: 048
  7. SULFAMETHOXAZOLE\TRIMETHOPRIM [Concomitant]
     Active Substance: SULFAMETHOXAZOLE\TRIMETHOPRIM
     Route: 042
  8. AMPHOTERICIN B [Concomitant]
     Active Substance: AMPHOTERICIN B
  9. ITRACONAZOLE [Concomitant]
     Active Substance: ITRACONAZOLE
     Route: 048

REACTIONS (3)
  - Immune reconstitution inflammatory syndrome [Unknown]
  - Paracoccidioides infection [Recovered/Resolved]
  - Blood HIV RNA increased [Recovered/Resolved]
